FAERS Safety Report 10296921 (Version 3)
Quarter: 2015Q4

REPORT INFORMATION
  Report Type: Report from Study
  Country: US (occurrence: US)
  Receive Date: 20140711
  Receipt Date: 20151104
  Transmission Date: 20160304
  Serious: Yes (Other)
  Sender: FDA-Public Use
  Company Number: US-SA-2014SA074135

PATIENT
  Sex: Male

DRUGS (2)
  1. GABAPENTIN. [Concomitant]
     Active Substance: GABAPENTIN
     Dates: start: 2014
  2. FABRAZYME [Suspect]
     Active Substance: AGALSIDASE BETA
     Indication: FABRY^S DISEASE
     Route: 042
     Dates: start: 201207

REACTIONS (13)
  - Malaise [Unknown]
  - Generalised oedema [Unknown]
  - Depression [Unknown]
  - Fatigue [Unknown]
  - Proteinuria [Not Recovered/Not Resolved]
  - Sensitivity to weather change [Unknown]
  - Pain [Unknown]
  - Cough [Not Recovered/Not Resolved]
  - Depressed mood [Unknown]
  - Swelling [Not Recovered/Not Resolved]
  - Nasopharyngitis [Unknown]
  - Loss of consciousness [Not Recovered/Not Resolved]
  - Tremor [Not Recovered/Not Resolved]

NARRATIVE: CASE EVENT DATE: 2014
